FAERS Safety Report 9891547 (Version 1)
Quarter: 2014Q1

REPORT INFORMATION
  Report Type: Report from Study
  Country: CA (occurrence: CA)
  Receive Date: 20140212
  Receipt Date: 20140212
  Transmission Date: 20141002
  Serious: Yes (Other)
  Sender: FDA-Public Use
  Company Number: CA-JNJFOC-20140202765

PATIENT
  Age: 40 Year
  Sex: Female
  Weight: 65 kg

DRUGS (3)
  1. REMICADE [Suspect]
     Indication: CROHN^S DISEASE
     Route: 042
     Dates: start: 2011
  2. IMURAN [Suspect]
     Indication: PRODUCT USED FOR UNKNOWN INDICATION
     Route: 065
  3. PREDNISONE [Concomitant]
     Route: 065

REACTIONS (3)
  - Erythema nodosum [Unknown]
  - Oedema peripheral [Unknown]
  - Ocular hyperaemia [Unknown]
